FAERS Safety Report 4499352-6 (Version None)
Quarter: 2004Q4

REPORT INFORMATION
  Report Type: 
  Country: None (occurrence: None)
  Receive Date: 20041111
  Receipt Date: 20020319
  Transmission Date: 20050328
  Serious: Yes (Hospitalization, Other)
  Sender: FDA-Public Use
  Company Number: US-MERCK-0203USA02024

PATIENT
  Age: 71 Year
  Sex: Male
  Weight: 91 kg

DRUGS (16)
  1. ASPIRIN [Concomitant]
     Route: 048
     Dates: start: 19990114
  2. PREVACID [Concomitant]
     Route: 048
     Dates: start: 19990114
  3. NASACORT [Concomitant]
     Route: 065
     Dates: start: 19990128
  4. ZANTAC [Concomitant]
     Route: 065
     Dates: start: 19990225
  5. TUMS [Concomitant]
     Route: 065
     Dates: start: 19990909
  6. TITRALAC ANTACID [Concomitant]
     Route: 065
     Dates: start: 20010830
  7. VIOXX [Suspect]
     Indication: ARTHRITIS
     Route: 048
     Dates: end: 20010323
  8. AVAPRO [Concomitant]
     Route: 065
     Dates: start: 19981002, end: 20030509
  9. NIACIN [Concomitant]
     Route: 065
     Dates: start: 19981002, end: 20031005
  10. TYLENOL [Concomitant]
     Route: 065
     Dates: start: 19981002
  11. CELEXA [Concomitant]
     Route: 065
     Dates: start: 19980427, end: 20030509
  12. FLEXERIL [Concomitant]
     Route: 048
  13. VICODIN [Concomitant]
     Route: 065
  14. ATIVAN [Concomitant]
     Route: 065
     Dates: start: 19981002, end: 20020606
  15. PLAVIX [Concomitant]
     Indication: MYOCARDIAL INFARCTION
     Route: 065
     Dates: start: 19981002, end: 19991002
  16. ATENOLOL [Concomitant]
     Indication: HYPERTENSION
     Route: 048
     Dates: start: 19990114

REACTIONS (17)
  - ANGIOPATHY [None]
  - CAROTID ARTERY STENOSIS [None]
  - CIRCULATORY COLLAPSE [None]
  - CORONARY ARTERY DISEASE [None]
  - DEAFNESS [None]
  - DYSPNOEA EXERTIONAL [None]
  - EMOTIONAL DISTRESS [None]
  - FEMUR FRACTURE [None]
  - GASTROINTESTINAL DISORDER [None]
  - INJURY [None]
  - MIGRAINE [None]
  - MYOCARDIAL INFARCTION [None]
  - NASAL POLYPS [None]
  - NASAL TURBINATE HYPERTROPHY [None]
  - STRESS SYMPTOMS [None]
  - VESTIBULAR DISORDER [None]
  - VESTIBULAR NEURONITIS [None]
